FAERS Safety Report 6453841-3 (Version None)
Quarter: 2009Q4

REPORT INFORMATION
  Report Type: 
  Country: None (occurrence: None)
  Receive Date: 20091124
  Receipt Date: 20091116
  Transmission Date: 20100525
  Serious: Yes (Hospitalization)
  Sender: FDA-Public Use
  Company Number: US-JNJFOC-20091102368

PATIENT
  Sex: Male
  Weight: 64.4 kg

DRUGS (7)
  1. INFLIXIMAB [Suspect]
     Route: 042
  2. INFLIXIMAB [Suspect]
     Indication: INFLAMMATORY BOWEL DISEASE
     Dosage: NO DRUG GIVEN
     Route: 042
  3. 5-AMINOSALICYLIC ACID [Concomitant]
     Route: 048
  4. ANTIBIOTICS UNSPECIFIED [Concomitant]
     Indication: INFLAMMATORY BOWEL DISEASE
  5. PREDNISONE [Concomitant]
  6. PRILOSEC [Concomitant]
  7. MERCAPTOPURINE [Concomitant]

REACTIONS (1)
  - CROHN'S DISEASE [None]
